FAERS Safety Report 9837261 (Version 1)
Quarter: 2013Q4

REPORT INFORMATION
  Report Type: Spontaneous
  Country: US (occurrence: None)
  Receive Date: 20131121
  Receipt Date: 20131121
  Transmission Date: 20140711
  Serious: No
  Sender: FDA-Public Use
  Company Number: 1000049873

PATIENT
  Age: 61 Year
  Sex: Female

DRUGS (12)
  1. TUDORZA PRESSAIR [Suspect]
     Indication: CHRONIC OBSTRUCTIVE PULMONARY DISEASE
     Route: 055
     Dates: start: 201308
  2. EDARBI (AZILSARTAN KAMEDOXOMIL) [Concomitant]
  3. HYDROCHLOROTHIAZIDE (HYDROCHLOROTHIAZIDE) [Concomitant]
  4. LEVOTHYROXINE (LEVOTHYROXINE SODIUM) [Concomitant]
  5. SERTRALINE (SERTRALINE) [Concomitant]
  6. SIMVASTATIN (SIMVASTATIN) [Concomitant]
  7. DEXILANT (DEXLANSOPRAZOLE) [Concomitant]
  8. VALACICLOVIR (VALACICLOVIR) [Concomitant]
  9. ASPIRIN (ACETYLSALICYLIC ACID) [Concomitant]
  10. CALCIUM + VITAMIN D (LEKOVIT CA) [Concomitant]
  11. NIACIN (NICOTINIC ACID) [Concomitant]
  12. VIT D3 (COLECALCIFEROL) [Concomitant]

REACTIONS (1)
  - Blood pressure increased [None]
